FAERS Safety Report 21279561 (Version 2)
Quarter: 2022Q3

REPORT INFORMATION
  Report Type: Spontaneous
  Country: JP (occurrence: JP)
  Receive Date: 20220901
  Receipt Date: 20220912
  Transmission Date: 20221026
  Serious: Yes (Other)
  Sender: FDA-Public Use
  Company Number: JP-BAXTER-2022BAX018359

PATIENT
  Age: 53 Year
  Sex: Male
  Weight: 74 kg

DRUGS (3)
  1. SUPRANE [Suspect]
     Active Substance: DESFLURANE
     Indication: Anaesthesia
     Dosage: END-TIDAL
  2. SUGAMMADEX [Suspect]
     Active Substance: SUGAMMADEX
     Indication: Anaesthesia
     Dosage: 300 MG
     Route: 065
  3. SUGAMMADEX [Suspect]
     Active Substance: SUGAMMADEX
     Indication: Drug therapy
     Dosage: AN ADDITIONAL 200 MG

REACTIONS (2)
  - Laryngospasm [Recovering/Resolving]
  - Anaphylactic reaction [Unknown]
